FAERS Safety Report 7349208-6 (Version None)
Quarter: 2011Q1

REPORT INFORMATION
  Report Type: 
  Country: None (occurrence: None)
  Receive Date: 20110303
  Receipt Date: 20110221
  Transmission Date: 20110831
  Serious: Yes (Other)
  Sender: FDA-Public Use
  Company Number: 834517

PATIENT
  Age: 44 Year
  Sex: Female
  Weight: 74.09 kg

DRUGS (1)
  1. MORPHINE SULFATE 4MG/ML (MORPHINE SULPHATE) [Suspect]
     Indication: PAIN
     Dosage: 4 MG, ONCE, INTRAVENOUS BOLUS
     Route: 040
     Dates: start: 20110218, end: 20110218

REACTIONS (2)
  - PRURITUS [None]
  - URTICARIA [None]
